FAERS Safety Report 16018514 (Version 4)
Quarter: 2020Q3

REPORT INFORMATION
  Report Type: Spontaneous
  Country: DE (occurrence: DE)
  Receive Date: 20190228
  Receipt Date: 20200920
  Transmission Date: 20201102
  Serious: Yes (Other)
  Sender: FDA-Public Use
  Company Number: PHHY2019DE042605

PATIENT
  Age: 67 Year
  Sex: Female
  Weight: 71 kg

DRUGS (52)
  1. DOCETAXEL. [Suspect]
     Active Substance: DOCETAXEL
     Dosage: 43 MG/M2, QW
     Route: 042
     Dates: start: 20130303, end: 20140303
  2. TRASTUZUMAB. [Suspect]
     Active Substance: TRASTUZUMAB
     Dosage: 396 MG, Q3W
     Route: 042
     Dates: start: 20140411
  3. TRASTUZUMAB. [Suspect]
     Active Substance: TRASTUZUMAB
     Dosage: 396 MG, Q3W
     Route: 042
     Dates: start: 20141107
  4. IBUPROFEN. [Concomitant]
     Active Substance: IBUPROFEN
     Indication: CANCER PAIN
     Dosage: 600 MG, UNK
     Route: 048
  5. RANITIC [Concomitant]
     Active Substance: RANITIDINE HYDROCHLORIDE
     Indication: ANAPHYLAXIS PROPHYLAXIS
     Dosage: 1 DF, QW
     Route: 042
     Dates: start: 20131227, end: 20140404
  6. RANITIC [Concomitant]
     Active Substance: RANITIDINE HYDROCHLORIDE
     Dosage: 1 DF, QW
     Route: 042
     Dates: start: 20140404
  7. PERTUZUMAB. [Suspect]
     Active Substance: PERTUZUMAB
     Dosage: 420 MG, Q2W
     Route: 042
     Dates: start: 20140117, end: 20141107
  8. FENISTIL [Concomitant]
     Active Substance: DIMETHINDENE
     Indication: ANAPHYLAXIS PROPHYLAXIS
     Dosage: 1 DF, QW
     Route: 042
     Dates: start: 20131227, end: 20140404
  9. LETROZOLE. [Suspect]
     Active Substance: LETROZOLE
     Indication: HER2 POSITIVE BREAST CANCER
     Dosage: 2.5 MG, UNK
     Route: 065
  10. DOCETAXEL. [Suspect]
     Active Substance: DOCETAXEL
     Dosage: 43 MG/M2, QW
     Route: 042
     Dates: start: 20140110
  11. DOCETAXEL. [Suspect]
     Active Substance: DOCETAXEL
     Dosage: 43 MG/M2, QW
     Route: 042
     Dates: start: 20140214
  12. DOCETAXEL. [Suspect]
     Active Substance: DOCETAXEL
     Dosage: 43 MG/M2, QW
     Route: 042
     Dates: start: 20140224
  13. DOCETAXEL. [Suspect]
     Active Substance: DOCETAXEL
     Dosage: 43 MG/M2, QW
     Route: 042
     Dates: start: 20140303, end: 20140303
  14. TRASTUZUMAB. [Suspect]
     Active Substance: TRASTUZUMAB
     Dosage: 132 MG, QW
     Route: 042
     Dates: start: 20140102, end: 20140404
  15. TRASTUZUMAB. [Suspect]
     Active Substance: TRASTUZUMAB
     Dosage: 132 MG, QW
     Route: 042
     Dates: start: 20140207
  16. TRASTUZUMAB. [Suspect]
     Active Substance: TRASTUZUMAB
     Dosage: 132 MG, QW
     Route: 042
     Dates: start: 20140303, end: 20140303
  17. TRASTUZUMAB. [Suspect]
     Active Substance: TRASTUZUMAB
     Dosage: 132 MG, QW
     Route: 042
     Dates: start: 20140310, end: 20140310
  18. DOCETAXEL. [Suspect]
     Active Substance: DOCETAXEL
     Indication: HER2 POSITIVE BREAST CANCER
     Dosage: 43 MG, QW
     Route: 042
     Dates: start: 20131227, end: 20131227
  19. DOCETAXEL. [Suspect]
     Active Substance: DOCETAXEL
     Dosage: 43 MG, QW
     Route: 042
     Dates: start: 20140310, end: 20140310
  20. TRASTUZUMAB. [Suspect]
     Active Substance: TRASTUZUMAB
     Dosage: 132 MG, QW
     Route: 042
     Dates: start: 20140117
  21. TRASTUZUMAB. [Suspect]
     Active Substance: TRASTUZUMAB
     Dosage: 132 MG, QW
     Route: 042
     Dates: end: 20140404
  22. PERTUZUMAB. [Suspect]
     Active Substance: PERTUZUMAB
     Indication: HER2 POSITIVE BREAST CANCER
     Dosage: 420 MG, QW
     Route: 042
     Dates: start: 20140110, end: 20140110
  23. PERTUZUMAB. [Suspect]
     Active Substance: PERTUZUMAB
     Dosage: 420 MG, Q3W
     Route: 042
     Dates: start: 20140224
  24. IBANDRONIC ACID. [Concomitant]
     Active Substance: IBANDRONIC ACID
     Indication: CANCER PAIN
     Dosage: 6 MG (3 MINUTES)
     Route: 042
     Dates: start: 20140303
  25. DOCETAXEL. [Suspect]
     Active Substance: DOCETAXEL
     Dosage: 43 MG/M2, QW
     Route: 042
     Dates: start: 20140131
  26. DOCETAXEL. [Suspect]
     Active Substance: DOCETAXEL
     Dosage: 43 MG, QW
     Route: 042
     Dates: start: 20140224
  27. DOCETAXEL. [Suspect]
     Active Substance: DOCETAXEL
     Dosage: 43 MG, QW
     Route: 042
     Dates: start: 20141107
  28. TRASTUZUMAB. [Suspect]
     Active Substance: TRASTUZUMAB
     Dosage: 132 MG, QW
     Route: 042
     Dates: start: 20140124
  29. TRASTUZUMAB. [Suspect]
     Active Substance: TRASTUZUMAB
     Dosage: 132 MG, QW
     Route: 042
     Dates: start: 20140224
  30. TRASTUZUMAB. [Suspect]
     Active Substance: TRASTUZUMAB
     Dosage: 396 MG, Q3W
     Route: 042
     Dates: start: 20140613, end: 20141107
  31. DOCETAXEL. [Suspect]
     Active Substance: DOCETAXEL
     Dosage: 43 MG, QW
     Route: 042
     Dates: start: 20140124, end: 20140124
  32. IBUPROFEN. [Concomitant]
     Active Substance: IBUPROFEN
     Dosage: 600 MG
     Route: 048
     Dates: start: 20131220
  33. MONO?EMBOLEX [Concomitant]
     Active Substance: CERTOPARIN SODIUM
     Indication: PROPHYLAXIS
     Dosage: 1 OT, QD
     Route: 058
     Dates: start: 20131220, end: 20140417
  34. MONO?EMBOLEX [Concomitant]
     Active Substance: CERTOPARIN SODIUM
     Indication: FACTOR V LEIDEN MUTATION
  35. KEVATRIL [Concomitant]
     Active Substance: GRANISETRON HYDROCHLORIDE
     Dosage: 1.5 MG, QW
     Route: 042
     Dates: start: 20140404
  36. FORTECORTIN [Concomitant]
     Active Substance: DEXAMETHASONE
     Dosage: 8 MG, QW
     Route: 042
     Dates: start: 20140404
  37. LETROZOLE. [Suspect]
     Active Substance: LETROZOLE
     Dosage: 2.5 MG
     Route: 065
     Dates: start: 20140407, end: 20140407
  38. DOCETAXEL. [Suspect]
     Active Substance: DOCETAXEL
     Dosage: 43 MG, QW
     Route: 042
     Dates: start: 20140117, end: 20141107
  39. TRASTUZUMAB. [Suspect]
     Active Substance: TRASTUZUMAB
     Dosage: 132 MG, QW
     Route: 042
     Dates: start: 20140131
  40. TRASTUZUMAB. [Suspect]
     Active Substance: TRASTUZUMAB
     Dosage: 132 MG, QW
     Route: 042
     Dates: start: 20140331
  41. PANTOPRAZOL [Concomitant]
     Active Substance: PANTOPRAZOLE SODIUM
     Indication: PROPHYLAXIS AGAINST GASTROINTESTINAL ULCER
     Dosage: 1 UNK, QD
     Route: 048
     Dates: start: 20131220
  42. TILIDIN [Concomitant]
     Active Substance: NALOXONE HYDROCHLORIDE\TILIDINE HYDROCHLORIDE
     Indication: CANCER PAIN
     Dosage: 50/4 MG
     Route: 048
     Dates: start: 20131220
  43. FENISTIL [Concomitant]
     Active Substance: DIMETHINDENE
     Dosage: 1 DF, QW
     Route: 042
     Dates: start: 20140404
  44. DOCETAXEL. [Suspect]
     Active Substance: DOCETAXEL
     Dosage: 43 MG/M2, QW
     Route: 042
     Dates: start: 20140207
  45. TRASTUZUMAB. [Suspect]
     Active Substance: TRASTUZUMAB
     Indication: HER2 POSITIVE BREAST CANCER
     Dosage: 264 MG, QW
     Route: 042
     Dates: start: 20131227, end: 20131227
  46. TRASTUZUMAB. [Suspect]
     Active Substance: TRASTUZUMAB
     Dosage: 132 MG, QW
     Route: 042
     Dates: start: 20140110
  47. TRASTUZUMAB. [Suspect]
     Active Substance: TRASTUZUMAB
     Dosage: 132 MG, QW
     Route: 042
     Dates: start: 20140214
  48. PERTUZUMAB. [Suspect]
     Active Substance: PERTUZUMAB
     Dosage: 420 MG, Q3W
     Route: 042
     Dates: start: 20140613, end: 20141107
  49. PERTUZUMAB. [Suspect]
     Active Substance: PERTUZUMAB
     Dosage: 420 MG, Q3W
     Route: 042
     Dates: start: 20141107
  50. BONDRONAT [Concomitant]
     Active Substance: IBANDRONATE SODIUM
     Indication: CANCER PAIN
     Dosage: 6 MG, EVERY 6 MINUTES
     Route: 042
     Dates: start: 20140303
  51. KEVATRIL [Concomitant]
     Active Substance: GRANISETRON HYDROCHLORIDE
     Indication: PROPHYLAXIS OF NAUSEA AND VOMITING
     Dosage: 1.5 MG, QW
     Route: 042
     Dates: start: 20131027, end: 20140404
  52. FORTECORTIN [Concomitant]
     Active Substance: DEXAMETHASONE
     Indication: PROPHYLAXIS OF NAUSEA AND VOMITING
     Dosage: 8 MG, QW
     Route: 042
     Dates: start: 20131027, end: 20140404

REACTIONS (15)
  - Oral herpes [Recovered/Resolved]
  - Macular hole [Recovered/Resolved]
  - Diarrhoea [Recovered/Resolved]
  - Tachycardia [Recovered/Resolved]
  - Epistaxis [Recovered/Resolved]
  - Lymphoedema [Recovered/Resolved]
  - Visual impairment [Recovered/Resolved]
  - Balance disorder [Recovered/Resolved]
  - Abdominal pain upper [Recovered/Resolved]
  - Pruritus [Recovered/Resolved]
  - Macular scar [Recovered/Resolved]
  - Fatigue [Recovered/Resolved]
  - Back pain [Recovered/Resolved]
  - Arthralgia [Recovered/Resolved]
  - Muscle spasms [Recovered/Resolved]

NARRATIVE: CASE EVENT DATE: 20140113
